FAERS Safety Report 10180449 (Version 2)
Quarter: 2014Q2

REPORT INFORMATION
  Report Type: Spontaneous
  Country: US (occurrence: US)
  Receive Date: 20140519
  Receipt Date: 20140519
  Transmission Date: 20141212
  Serious: No
  Sender: FDA-Public Use
  Company Number: US-AMGEN INC.-USASP2013075402

PATIENT
  Age: 77 Year
  Sex: Female

DRUGS (11)
  1. PROLIA [Suspect]
     Indication: OSTEOPOROSIS
     Dosage: UNK
     Route: 065
     Dates: start: 20121113
  2. NITROGLYCERIN [Concomitant]
     Indication: OESOPHAGEAL SPASM
     Dosage: UNK UNK, AS NECESSARY
     Route: 065
  3. PANTOPRAZOLE [Concomitant]
     Route: 065
  4. ADVAIR [Concomitant]
     Dosage: 250/50 UNK, BID
     Route: 065
  5. SIMVASTATIN [Concomitant]
     Route: 065
  6. PRAMIPEXOLE [Concomitant]
     Route: 065
  7. LEVOTHYROXIN [Concomitant]
     Route: 065
  8. SPIRIVA [Concomitant]
     Route: 065
  9. ZANTAC [Concomitant]
     Dosage: AS NECESSARY
     Route: 065
  10. CALCIUM +D                         /00944201/ [Concomitant]
     Dosage: 500 MG, UNK
     Route: 065
  11. ASPIRIN [Concomitant]
     Dosage: 81 MG, QD
     Route: 065

REACTIONS (2)
  - Blood pressure abnormal [Unknown]
  - Spinal deformity [Unknown]
